FAERS Safety Report 12843486 (Version 1)
Quarter: 2016Q4

REPORT INFORMATION
  Report Type: Spontaneous
  Country: US (occurrence: US)
  Receive Date: 20161013
  Receipt Date: 20161013
  Transmission Date: 20170207
  Serious: Yes (Hospitalization, Other)
  Sender: FDA-Public Use
  Company Number: None

PATIENT
  Age: 58 Year
  Sex: Female
  Weight: 70.13 kg

DRUGS (13)
  1. KLONOPAN [Concomitant]
  2. GENERIC NEXIUM [Concomitant]
     Active Substance: ESOMEPRAZOLE MAGNESIUM
  3. DEPAKOT [Concomitant]
  4. VITAMIN D [Concomitant]
     Active Substance: CHOLECALCIFEROL
  5. ABILIFY [Suspect]
     Active Substance: ARIPIPRAZOLE
     Indication: DEPRESSION
     Route: 048
     Dates: start: 20110606, end: 20160801
  6. VISTERAL [Concomitant]
  7. VERAPAMIL [Concomitant]
     Active Substance: VERAPAMIL HYDROCHLORIDE
  8. COLZAPAM [Concomitant]
  9. TYLANOL WITH 3 CODINE [Concomitant]
  10. HYDROCLOITHIZED [Concomitant]
  11. ASPRIN [Concomitant]
     Active Substance: ASPIRIN
  12. PREMARIN [Concomitant]
     Active Substance: ESTROGENS, CONJUGATED
  13. BENADRIL [Concomitant]

REACTIONS (4)
  - Discomfort [None]
  - Obsessive-compulsive disorder [None]
  - Gambling [None]
  - Hyperphagia [None]

NARRATIVE: CASE EVENT DATE: 201109
